FAERS Safety Report 6616239-0 (Version None)
Quarter: 2010Q1

REPORT INFORMATION
  Report Type: 
  Country: None (occurrence: None)
  Receive Date: 20100305
  Receipt Date: 20100225
  Transmission Date: 20100710
  Serious: Yes (Other)
  Sender: FDA-Public Use
  Company Number: GXKR2010TN02310

PATIENT
  Age: 56 Year
  Sex: Male

DRUGS (2)
  1. FUROSEMIDE (NGX) [Suspect]
     Indication: HYPERTENSION
     Dosage: 40 MG/DAY
     Route: 065
  2. IRBESARTAN + HYDROCHLOROTHIAZIDE [Interacting]
     Indication: HYPERTENSION
     Route: 065

REACTIONS (7)
  - DRUG ERUPTION [None]
  - DRUG HYPERSENSITIVITY [None]
  - MUCOSAL EROSION [None]
  - PRURITUS [None]
  - RASH ERYTHEMATOUS [None]
  - RASH PAPULAR [None]
  - SKIN PLAQUE [None]
